FAERS Safety Report 6287600-1 (Version None)
Quarter: 2009Q3

REPORT INFORMATION
  Report Type: 
  Country: None (occurrence: None)
  Receive Date: 20090727
  Receipt Date: 20090727
  Transmission Date: 20100115
  Serious: Yes (Life-Threatening)
  Sender: FDA-Public Use
  Company Number: None

PATIENT
  Sex: Female
  Weight: 90.7194 kg

DRUGS (2)
  1. REMERON [Suspect]
     Indication: DEPRESSION
     Dosage: 15 MG. ONCE DAILY (TEVA)
     Dates: start: 20090624, end: 20090629
  2. REMERON [Suspect]
     Indication: DEPRESSION
     Dosage: 15 MG. ONCE DAILY (TEVA)
     Dates: start: 20090703, end: 20090705

REACTIONS (1)
  - ALCOHOLISM [None]
